FAERS Safety Report 16417271 (Version 2)
Quarter: 2019Q2

REPORT INFORMATION
  Report Type: Spontaneous
  Country: US (occurrence: US)
  Receive Date: 20190611
  Receipt Date: 20190613
  Transmission Date: 20190711
  Serious: Yes (Death)
  Sender: FDA-Public Use
  Company Number: US-LUNDBECK-DKLU2079938

PATIENT
  Age: 87 Year
  Sex: Male
  Weight: 145 kg

DRUGS (1)
  1. NORTHERA [Suspect]
     Active Substance: DROXIDOPA
     Indication: ORTHOSTATIC HYPOTENSION
     Route: 048
     Dates: start: 20171221, end: 201803

REACTIONS (1)
  - Death [Fatal]

NARRATIVE: CASE EVENT DATE: 20190427
